FAERS Safety Report 9962177 (Version 1)
Quarter: 2014Q1

REPORT INFORMATION
  Report Type: Spontaneous
  Country: US (occurrence: US)
  Receive Date: 20140305
  Receipt Date: 20140305
  Transmission Date: 20141002
  Serious: Yes (Hospitalization, Disabling, Other)
  Sender: FDA-Public Use
  Company Number: US-INCYTE CORPORATION-2014IN000536

PATIENT
  Age: 59 Year
  Sex: Female

DRUGS (2)
  1. JAKAFI [Suspect]
     Indication: MYELOFIBROSIS
     Dosage: 10 MG, BID
  2. PREDNISONE [Suspect]
     Indication: MYELOFIBROSIS
     Dosage: 5 MG, DAILY

REACTIONS (2)
  - Zygomycosis [Not Recovered/Not Resolved]
  - Visual impairment [Not Recovered/Not Resolved]
